FAERS Safety Report 7605143-7 (Version None)
Quarter: 2011Q3

REPORT INFORMATION
  Report Type: 
  Country: None (occurrence: None)
  Receive Date: 20110713
  Receipt Date: 20110523
  Transmission Date: 20111222
  Serious: Yes (Other)
  Sender: FDA-Public Use
  Company Number: US-BAYER-201039176NA

PATIENT
  Age: 18 Year
  Sex: Female
  Weight: 54.422 kg

DRUGS (6)
  1. ORTHO TRI-CYCLEN [Concomitant]
     Dosage: UNK
     Dates: start: 20060701
  2. PHENERGAN AND CHLORAL HYDRATE [Concomitant]
     Indication: NAUSEA
     Dosage: 25 MG, EVERY 6 HOURS AS NEEDED
     Route: 048
     Dates: start: 20061020
  3. NEXIUM [Concomitant]
  4. YASMIN [Suspect]
     Indication: PREMENSTRUAL SYNDROME
     Dosage: UNK
     Route: 048
     Dates: start: 20051201, end: 20060101
  5. YAZ [Suspect]
     Indication: CONTRACEPTION
     Dosage: UNK
     Route: 048
     Dates: start: 20070901, end: 20090101
  6. LORTAB [Concomitant]
     Indication: PAIN
     Dosage: 5 MG, 1-2 EVERY 6 HOURS AS NEEDED
     Route: 048
     Dates: start: 20061020

REACTIONS (2)
  - CHOLELITHIASIS [None]
  - BILIARY COLIC [None]
